FAERS Safety Report 8811507 (Version 1)
Quarter: 2012Q4

REPORT INFORMATION
  Report Type: 
  Country: US (occurrence: US)
  Receive Date: 20120927
  Receipt Date: 20120927
  Transmission Date: 20130627
  Serious: Yes (Hospitalization, Other)
  Sender: FDA-Public Use
  Company Number: US-ELI_LILLY_AND_COMPANY-US201209004101

PATIENT
  Age: 55 Year
  Sex: Male

DRUGS (4)
  1. CYMBALTA [Suspect]
     Dosage: 30mg, daily
     Dates: start: 2012
  2. ALCOHOL [Concomitant]
  3. SEROQUEL [Concomitant]
  4. METHADONE [Concomitant]

REACTIONS (3)
  - Hepatic failure [Recovered/Resolved]
  - Renal failure [Recovered/Resolved]
  - Binge drinking [Unknown]
